FAERS Safety Report 6042098-3 (Version None)
Quarter: 2009Q1

REPORT INFORMATION
  Report Type: 
  Country: None (occurrence: None)
  Receive Date: 20090116
  Receipt Date: 20090107
  Transmission Date: 20090719
  Serious: Yes (Other)
  Sender: FDA-Public Use
  Company Number: PHEH2009US00584

PATIENT
  Sex: Female

DRUGS (5)
  1. AREDIA [Suspect]
     Indication: BREAST CANCER
     Dosage: 90 MG, QMO
     Route: 042
     Dates: start: 20000501, end: 20020601
  2. ZOMETA [Suspect]
     Indication: BREAST CANCER
     Dosage: 4 MG, MONTHLY
     Route: 042
     Dates: start: 20020701, end: 20050601
  3. LIPITOR [Concomitant]
  4. EFFEXOR [Concomitant]
  5. CELEBREX [Concomitant]

REACTIONS (1)
  - BONE DISORDER [None]
